FAERS Safety Report 16868687 (Version 1)
Quarter: 2019Q4

REPORT INFORMATION
  Report Type: Spontaneous
  Country: US (occurrence: US)
  Receive Date: 20190930
  Receipt Date: 20190930
  Transmission Date: 20200122
  Serious: No
  Sender: FDA-Public Use
  Company Number: None

PATIENT
  Age: 68 Year
  Sex: Female
  Weight: 70.92 kg

DRUGS (11)
  1. IBRANCE [Suspect]
     Active Substance: PALBOCICLIB
     Indication: BREAST CANCER FEMALE
     Route: 048
  2. DICLOFENAC SODIUM. [Concomitant]
     Active Substance: DICLOFENAC SODIUM
  3. LETROZOLE. [Concomitant]
     Active Substance: LETROZOLE
  4. LOSARTAN POTASSIUM. [Concomitant]
     Active Substance: LOSARTAN POTASSIUM
  5. SIMVASTATIN. [Concomitant]
     Active Substance: SIMVASTATIN
  6. DIVALPROEX SODIUM. [Concomitant]
     Active Substance: DIVALPROEX SODIUM
  7. HEPARIN (PORCINE) IN NACL [Concomitant]
  8. LANTUS SOLOSTAR [Concomitant]
     Active Substance: INSULIN GLARGINE
  9. CARVEDILOL. [Concomitant]
     Active Substance: CARVEDILOL
  10. LEVOTHYROXINE SODIUM. [Concomitant]
     Active Substance: LEVOTHYROXINE SODIUM
  11. LORATADINE. [Concomitant]
     Active Substance: LORATADINE

REACTIONS (2)
  - Blood count abnormal [None]
  - Sinusitis [None]
